FAERS Safety Report 9671744 (Version 2)
Quarter: 2013Q4

REPORT INFORMATION
  Report Type: Report from Study
  Country: US (occurrence: US)
  Receive Date: 20131106
  Receipt Date: 20131106
  Transmission Date: 20140711
  Serious: Yes (Hospitalization)
  Sender: FDA-Public Use
  Company Number: US-ACTELION-A-US2013-77495

PATIENT
  Age: 62 Year
  Sex: Female

DRUGS (14)
  1. TRACLEER [Suspect]
     Indication: PULMONARY ARTERIAL HYPERTENSION
     Dosage: 125 MG, BID
     Route: 048
     Dates: start: 20121118
  2. TRACLEER [Suspect]
     Dosage: 62.5 MG, BID
     Route: 048
     Dates: start: 201204, end: 20121117
  3. VENTAVIS [Suspect]
     Indication: PULMONARY ARTERIAL HYPERTENSION
     Dosage: 5 MCG, X6-9/DAY
     Route: 055
     Dates: start: 20130213
  4. COUMADIN [Concomitant]
  5. LASIX [Concomitant]
     Dosage: UNK UNK, QD
  6. TOPROL [Concomitant]
  7. LANOXIN [Concomitant]
  8. AMARYL [Concomitant]
  9. ZYRTEC [Concomitant]
     Dosage: 10 MG, QD
     Dates: start: 2012
  10. BIOFLEX [Concomitant]
  11. PRILOSEC [Concomitant]
     Dosage: 20 MG, UNK
  12. JANUVIA [Concomitant]
  13. ATARAX [Concomitant]
     Dosage: 25 MG, PRN
  14. ALDACTONE [Concomitant]
     Dosage: 25 MG, QD
     Dates: start: 2013

REACTIONS (8)
  - Gallbladder disorder [Recovered/Resolved]
  - Atrial fibrillation [Recovering/Resolving]
  - Cardiac ablation [Unknown]
  - Dyspnoea exertional [Recovering/Resolving]
  - Nausea [Recovered/Resolved]
  - Vomiting [Recovered/Resolved]
  - Palpitations [Recovered/Resolved]
  - Asthenia [Not Recovered/Not Resolved]
